FAERS Safety Report 13037562 (Version 1)
Quarter: 2016Q4

REPORT INFORMATION
  Report Type: Spontaneous
  Country: US (occurrence: US)
  Receive Date: 20161217
  Receipt Date: 20161217
  Transmission Date: 20170207
  Serious: No
  Sender: FDA-Public Use
  Company Number: US-B.I. PHARMACEUTICALS,INC./RIDGEFIELD-2016-BI-084911

PATIENT
  Age: 66 Year
  Sex: Male

DRUGS (12)
  1. SPIRIVA RESPIMAT [Suspect]
     Active Substance: TIOTROPIUM BROMIDE
     Indication: CHRONIC OBSTRUCTIVE PULMONARY DISEASE
     Dosage: 2 ACTUATION ONCE A DAY;  FORM STRENGTH: 2.5 MCG; FORMULATION: INHALATION SPRAY  ADMINISTRATION CORRE
     Route: 055
     Dates: start: 201609
  2. WARFARIN [Concomitant]
     Active Substance: WARFARIN
     Indication: ANTICOAGULANT THERAPY
     Dosage: 2 TABLET FOUR TIMES A WEEK;  FORM STRENGTH: 5MG; FORMULATION: TABLET
     Route: 048
  3. ATORVASTATIN [Concomitant]
     Active Substance: ATORVASTATIN
     Indication: BLOOD CHOLESTEROL INCREASED
     Dosage: 1 TAB DAILY;  FORM STRENGTH: 40MG; FORMULATION: TABLET
     Route: 048
  4. ALFUZOSIN HCL [Concomitant]
     Active Substance: ALFUZOSIN HYDROCHLORIDE
     Indication: PROSTATOMEGALY
     Dosage: 1 TAB DAILY;  FORM STRENGTH: 10MG; FORMULATION: TABLET
     Route: 048
  5. SYMBICORT [Concomitant]
     Active Substance: BUDESONIDE\FORMOTEROL FUMARATE DIHYDRATE
     Indication: CHRONIC OBSTRUCTIVE PULMONARY DISEASE
     Dosage: 2 PUFFS BID;  FORMULATION: INHALATION AEROSOL;
     Route: 055
  6. PROVENTIL [Concomitant]
     Active Substance: ALBUTEROL
     Indication: CHRONIC OBSTRUCTIVE PULMONARY DISEASE
     Dosage: 2 PUFFS AS NEEDED;  FORMULATION: INHALATION AEROSOL;
     Route: 055
  7. WARFARIN [Concomitant]
     Active Substance: WARFARIN
     Dosage: 3 TABLETS THREE DAYS WEEK;  FORM STRENGTH: 5MG; FORMULATION: TABLET
     Route: 048
  8. POTASSIUM [Concomitant]
     Active Substance: POTASSIUM
     Indication: FLUID RETENTION
     Dosage: 1 TAB DAILY;  FORM STRENGTH: 10 MEQ; FORMULATION: TABLET
     Route: 048
  9. CLOPIDOGREL [Concomitant]
     Active Substance: CLOPIDOGREL BISULFATE
     Indication: ANTICOAGULANT THERAPY
     Dosage: 1 TAB DAILY;  FORM STRENGTH: 75MG; FORMULATION: TABLET
     Route: 048
  10. FUROSEMIDE. [Concomitant]
     Active Substance: FUROSEMIDE
     Indication: FLUID RETENTION
     Dosage: 3 TAB DAILY;  FORM STRENGTH: 20MG; FORMULATION: TABLET
     Route: 048
  11. ASPIRIN. [Concomitant]
     Active Substance: ASPIRIN
     Indication: PRODUCT USED FOR UNKNOWN INDICATION
     Dosage: 1 TAB DAILY;  FORM STRENGTH: 81 MG; FORMULATION: TABLET
     Route: 048
  12. METOPROLOL. [Concomitant]
     Active Substance: METOPROLOL
     Indication: HYPERTENSION
     Dosage: 0.5 TAB BID;  FORM STRENGTH: 25MG; FORMULATION: TABLET
     Route: 048

REACTIONS (1)
  - Pulmonary congestion [Not Recovered/Not Resolved]

NARRATIVE: CASE EVENT DATE: 201609
